FAERS Safety Report 6254232-0 (Version None)
Quarter: 2009Q2

REPORT INFORMATION
  Report Type: 
  Country: None (occurrence: None)
  Receive Date: 20090630
  Receipt Date: 20090630
  Transmission Date: 20091009
  Serious: No
  Sender: FDA-Public Use
  Company Number: None

PATIENT
  Age: 43 Year
  Sex: Female
  Weight: 68.0396 kg

DRUGS (1)
  1. SINGULAIR [Suspect]
     Indication: ASTHMA
     Dosage: 1 TAB DAILY PO
     Route: 048
     Dates: start: 20080705, end: 20090616

REACTIONS (3)
  - ANOSMIA [None]
  - DYSGEUSIA [None]
  - NASAL DISCOMFORT [None]
